FAERS Safety Report 8992355 (Version 1)
Quarter: 2012Q4

REPORT INFORMATION
  Report Type: 
  Country: DK (occurrence: CA)
  Receive Date: 20121231
  Receipt Date: 20121231
  Transmission Date: 20130627
  Serious: Yes (Other)
  Sender: FDA-Public Use
  Company Number: CA-FRI-1000041346

PATIENT
  Age: 53 Year
  Sex: Male

DRUGS (3)
  1. CELEXA [Suspect]
  2. METHADONE [Suspect]
  3. HYDROCHLOROTHIAZIDE [Suspect]

REACTIONS (5)
  - Torsade de pointes [Unknown]
  - Electrocardiogram QT prolonged [Unknown]
  - Ventricular arrhythmia [Unknown]
  - Blood potassium decreased [Unknown]
  - Blood magnesium decreased [Unknown]
